FAERS Safety Report 12696136 (Version 2)
Quarter: 2016Q3

REPORT INFORMATION
  Report Type: Spontaneous
  Country: JP (occurrence: JP)
  Receive Date: 20160829
  Receipt Date: 20160831
  Transmission Date: 20161109
  Serious: Yes (Other)
  Sender: FDA-Public Use
  Company Number: JP-009507513-1608JPN012767

PATIENT

DRUGS (1)
  1. TEMODAL [Suspect]
     Active Substance: TEMOZOLOMIDE
     Dosage: DAILY DOSAGE UNKNOWN
     Route: 048

REACTIONS (1)
  - Disease progression [Unknown]
